FAERS Safety Report 7268739-0 (Version None)
Quarter: 2011Q1

REPORT INFORMATION
  Report Type: 
  Country: None (occurrence: None)
  Receive Date: 20110201
  Receipt Date: 20110120
  Transmission Date: 20110831
  Serious: Yes (Life-Threatening, Hospitalization)
  Sender: FDA-Public Use
  Company Number: US-CELGENEUS-163-C5013-11012379

PATIENT
  Sex: Male
  Weight: 98.972 kg

DRUGS (14)
  1. HYDROCODONE BITARTRATE AND ACETAMINOPHEN [Concomitant]
     Indication: PAIN
     Dosage: 5/500
     Route: 048
     Dates: start: 20080101
  2. CC-5013\PLACEBO [Suspect]
     Route: 048
     Dates: start: 20110104, end: 20110116
  3. SODIUM CHLORIDE [Concomitant]
     Route: 058
  4. UROXATRAL [Concomitant]
     Route: 065
  5. PREDNISONE [Suspect]
     Route: 065
     Dates: start: 20110104, end: 20110116
  6. LUPRON [Concomitant]
     Route: 065
  7. DOCETAXEL [Suspect]
     Indication: PROSTATE CANCER
     Route: 065
     Dates: start: 20101123
  8. PREDNISONE [Suspect]
     Indication: PROSTATE CANCER
     Route: 065
     Dates: start: 20101123
  9. OMEPRAZOLE [Concomitant]
     Route: 058
  10. CC-5013\PLACEBO [Suspect]
     Indication: PROSTATE CANCER
     Route: 048
     Dates: start: 20101123
  11. ZOMETA [Concomitant]
     Route: 051
  12. DOCETAXEL [Suspect]
     Route: 065
     Dates: start: 20110104
  13. PROCHLORPERAZINE [Concomitant]
     Indication: NAUSEA
     Route: 048
     Dates: start: 20101113
  14. HEPARIN [Concomitant]
     Route: 058

REACTIONS (3)
  - ACUTE RESPIRATORY FAILURE [None]
  - ATRIAL FIBRILLATION [None]
  - SEPSIS [None]
